FAERS Safety Report 9318618 (Version 1)
Quarter: 2013Q2

REPORT INFORMATION
  Report Type: Spontaneous
  Country: GB (occurrence: None)
  Receive Date: 20130524
  Receipt Date: 20130524
  Transmission Date: 20140414
  Serious: Yes (Life-Threatening, Hospitalization, Other)
  Sender: FDA-Public Use
  Company Number: 2013P1006353

PATIENT
  Age: 79 Year
  Sex: Female
  Weight: 59.88 kg

DRUGS (21)
  1. LANOXIN [Suspect]
     Indication: ATRIAL FIBRILLATION
     Route: 048
  2. CLARITHROMYCIN [Suspect]
     Indication: LOWER RESPIRATORY TRACT INFECTION
     Route: 048
     Dates: start: 20110113
  3. CLARITHROMYCIN [Suspect]
     Indication: CHRONIC OBSTRUCTIVE PULMONARY DISEASE
     Route: 048
     Dates: start: 20110113
  4. CLARITHROMYCIN [Suspect]
     Indication: CONDITION AGGRAVATED
     Route: 048
     Dates: start: 20110113
  5. AMLODIPINE [Concomitant]
  6. ATORVASTATIN [Concomitant]
  7. CALCIUM [Concomitant]
  8. BISOPROLOL [Concomitant]
  9. DOXYCYCLINE [Concomitant]
  10. FRUSEMIDE [Concomitant]
  11. TRIMETHOPRIM [Suspect]
     Indication: LOWER RESPIRATORY TRACT INFECTION
     Route: 048
     Dates: start: 20110107, end: 20110113
  12. TRIMETHOPRIM [Suspect]
     Indication: CHRONIC OBSTRUCTIVE PULMONARY DISEASE
     Route: 048
     Dates: start: 20110107, end: 20110113
  13. TRIMETHOPRIM [Suspect]
     Indication: CONDITION AGGRAVATED
     Route: 048
     Dates: start: 20110107, end: 20110113
  14. GLICLAZIDE [Concomitant]
  15. NITROGLYCERINE [Concomitant]
  16. IPRATROPIUM BROMIDE [Concomitant]
  17. LANSOPRAZOLE [Concomitant]
  18. PREDNISOLONE [Concomitant]
  19. SALBUTAMOL SULPHATE [Concomitant]
  20. FLUTICASONE + SALMETEROL [Concomitant]
  21. WARFARIN SODIUM [Concomitant]

REACTIONS (11)
  - Hypersensitivity [None]
  - Decreased appetite [None]
  - Atrial fibrillation [None]
  - Bradycardia [None]
  - Confusional state [None]
  - Diarrhoea [None]
  - Toxicity to various agents [None]
  - Drug interaction [None]
  - Malaise [None]
  - Hypothermia [None]
  - Unresponsive to stimuli [None]
